FAERS Safety Report 25749150 (Version 2)
Quarter: 2025Q3

REPORT INFORMATION
  Report Type: Report from Study
  Country: US (occurrence: US)
  Receive Date: 20250902
  Receipt Date: 20250903
  Transmission Date: 20251020
  Serious: Yes (Other)
  Sender: ABBVIE
  Company Number: US-ABBVIE-6428219

PATIENT
  Age: 77 Year
  Sex: Male

DRUGS (2)
  1. VYALEV [Suspect]
     Active Substance: FOSCARBIDOPA\FOSLEVODOPA
     Indication: Parkinson^s disease
     Dosage: DOSAGE: 120 MG/ML
     Route: 058
     Dates: start: 20250512, end: 20250825
  2. KEFLEX [Suspect]
     Active Substance: CEPHALEXIN
     Indication: Cellulitis
     Dosage: FORM STRENGTH: 500 MILLIGRAM
     Route: 065
     Dates: start: 202508

REACTIONS (14)
  - Unresponsive to stimuli [Recovered/Resolved]
  - Device issue [Not Recovered/Not Resolved]
  - Infusion site papule [Unknown]
  - Catheter site mass [Unknown]
  - Parkinson^s disease [Not Recovered/Not Resolved]
  - Catheter site cellulitis [Not Recovered/Not Resolved]
  - Infusion site induration [Not Recovered/Not Resolved]
  - Infusion site swelling [Unknown]
  - Emotional disorder [Unknown]
  - Loss of consciousness [Recovered/Resolved]
  - Gastrointestinal disorder [Not Recovered/Not Resolved]
  - Underdose [Not Recovered/Not Resolved]
  - Loss of consciousness [Recovered/Resolved]
  - Infusion site nodule [Not Recovered/Not Resolved]

NARRATIVE: CASE EVENT DATE: 20250101
